FAERS Safety Report 8772553 (Version 2)
Quarter: 2012Q4

REPORT INFORMATION
  Report Type: 
  Country: BR (occurrence: BR)
  Receive Date: 20120905
  Receipt Date: 20120914
  Transmission Date: 20130627
  Serious: Yes (Other)
  Sender: FDA-Public Use
  Company Number: BR-PFIZER INC-2012214098

PATIENT
  Age: 45 Year
  Sex: Female
  Weight: 75 kg

DRUGS (4)
  1. LYRICA [Suspect]
     Indication: PAIN
     Dosage: 150 mg (one capsule), every 8 hours
     Route: 048
     Dates: start: 2011
  2. CAPTOPRIL [Concomitant]
     Indication: BLOOD PRESSURE INCREASED
     Dosage: 1 tablet daily
     Dates: start: 2002
  3. FLUOXETINE [Concomitant]
     Indication: ANTIDEPRESSANT THERAPY
     Dosage: 1 tablet daily
     Dates: start: 2009
  4. FLUNITRAZEPAM [Concomitant]
     Indication: SLEEP DISORDER
     Dosage: 1 tablet daily
     Dates: start: 2011

REACTIONS (5)
  - Neuralgia [Unknown]
  - Limb discomfort [Unknown]
  - Depression [Unknown]
  - Premature menopause [Unknown]
  - Pain [Unknown]
